FAERS Safety Report 8731733 (Version 2)
Quarter: 2013Q2

REPORT INFORMATION
  Report Type: Report from Study
  Country: JP (occurrence: JP)
  Receive Date: 20120820
  Receipt Date: 20130509
  Transmission Date: 20140414
  Serious: Yes (Hospitalization, Other)
  Sender: FDA-Public Use
  Company Number: JP-009507513-1208JPN006993

PATIENT
  Age: 67 Year
  Sex: Female
  Weight: 58 kg

DRUGS (20)
  1. PEGINTRON [Suspect]
     Indication: CHRONIC HEPATITIS C
     Dosage: 1.379 MICROGRAM PER KILOGRAM, QW
     Route: 058
     Dates: start: 20120502, end: 20120509
  2. PEGINTRON [Suspect]
     Dosage: 1.2 MICROGRAM PER KILOGRAM, QW
     Route: 058
     Dates: start: 20120516, end: 20120516
  3. PEGINTRON [Suspect]
     Dosage: 70G/KG/WEEK
     Route: 058
     Dates: start: 20120516, end: 20120516
  4. PEGINTRON [Suspect]
     Dosage: 1.379 MICROGRAM PER KILOGRAM, QW
     Route: 058
     Dates: start: 20120523, end: 20120613
  5. PEGINTRON [Suspect]
     Dosage: 80G/KG/WEEK
     Route: 058
     Dates: start: 20120523, end: 20120613
  6. REBETOL [Suspect]
     Indication: CHRONIC HEPATITIS C
     Dosage: 600 MG, ONCE
     Route: 048
     Dates: start: 20120502, end: 20120524
  7. REBETOL [Suspect]
     Dosage: 400 MG, ONCE
     Route: 048
     Dates: start: 20120525, end: 20120606
  8. REBETOL [Suspect]
     Dosage: 200 MG, ONCE
     Route: 048
     Dates: start: 20120606, end: 20120615
  9. TELAVIC [Suspect]
     Indication: CHRONIC HEPATITIS C
     Dosage: 2250 MG
     Route: 048
     Dates: start: 20120502, end: 20120606
  10. TELAVIC [Suspect]
     Dosage: 1500 MG, ONCE
     Route: 048
     Dates: start: 20120606, end: 20120615
  11. URSO [Concomitant]
     Indication: CHRONIC HEPATITIS C
     Route: 048
  12. TALION (BEPOTASTINE BESYLATE) [Concomitant]
     Indication: PROPHYLAXIS
     Route: 048
  13. JUVELA N [Concomitant]
     Indication: HYPERLIPIDAEMIA
     Route: 048
  14. GLAKAY [Concomitant]
     Indication: OSTEOPOROSIS
     Route: 048
  15. MARZULENE-S [Concomitant]
     Indication: PROPHYLAXIS
     Dosage: 1 G, ONCE
     Route: 048
     Dates: start: 20120501, end: 20120524
  16. VOLTAREN SR [Concomitant]
     Indication: PROPHYLAXIS
     Dosage: 37.5 MG, ONCE
     Route: 048
     Dates: start: 20120501, end: 20120512
  17. DETOMEFAN [Concomitant]
     Indication: BRONCHITIS
     Dosage: IT IS SINGLE USE DURING 30MG/DAY.
     Route: 048
     Dates: start: 20120503, end: 20120510
  18. HUSCODE [Concomitant]
     Indication: BRONCHITIS
     Route: 048
     Dates: start: 20120503, end: 20120503
  19. MENTAX [Concomitant]
     Indication: PROPHYLAXIS
     Route: 061
     Dates: start: 20120503
  20. FUROSEMIDE [Concomitant]
     Indication: OEDEMA
     Dosage: UNK
     Dates: start: 20120618

REACTIONS (5)
  - Skin disorder [Not Recovered/Not Resolved]
  - Skin disorder [Not Recovered/Not Resolved]
  - Haemoglobin decreased [Not Recovered/Not Resolved]
  - Haemoglobin decreased [Not Recovered/Not Resolved]
  - Haemoglobin decreased [Recovered/Resolved]
